FAERS Safety Report 22213719 (Version 1)
Quarter: 2023Q2

REPORT INFORMATION
  Report Type: Spontaneous
  Country: CN (occurrence: CN)
  Receive Date: 20230414
  Receipt Date: 20230414
  Transmission Date: 20230721
  Serious: Yes (Other)
  Sender: FDA-Public Use
  Company Number: CN-FreseniusKabi-FK202304620

PATIENT
  Age: 2 Year
  Sex: Female
  Weight: 12.30 kg

DRUGS (8)
  1. EGG PHOSPHOLIPIDS\GLYCERIN\MEDIUM-CHAIN TRIGLYCERIDES\SOYBEAN OIL [Suspect]
     Active Substance: EGG PHOSPHOLIPIDS\GLYCERIN\MEDIUM-CHAIN TRIGLYCERIDES\SOYBEAN OIL
     Indication: Abdominal mass
     Route: 041
     Dates: start: 20230321, end: 20230321
  2. VITAMINS [Concomitant]
     Active Substance: VITAMINS
     Indication: Abdominal mass
     Route: 041
     Dates: start: 20230321, end: 20230321
  3. Pediatric Compound Amino Acid Injection (18AA-?) [Concomitant]
     Indication: Abdominal mass
     Route: 041
     Dates: start: 20230321, end: 20230321
  4. POTASSIUM CHLORIDE [Concomitant]
     Active Substance: POTASSIUM CHLORIDE
     Indication: Abdominal mass
     Route: 041
     Dates: start: 20230321, end: 20230321
  5. Fat-soluble Vitamin for Injection (I) [Concomitant]
     Indication: Abdominal mass
     Route: 041
     Dates: start: 20230321, end: 20230321
  6. Concentrated Sodium Chloride Injection [Concomitant]
     Indication: Abdominal mass
     Route: 041
     Dates: start: 20230321, end: 20230321
  7. DEXTROSE [Concomitant]
     Active Substance: DEXTROSE\DEXTROSE MONOHYDRATE
     Indication: Abdominal mass
     Route: 041
     Dates: start: 20230321, end: 20230321
  8. DEXTROSE [Concomitant]
     Active Substance: DEXTROSE\DEXTROSE MONOHYDRATE
     Route: 041
     Dates: start: 20230321, end: 20230321

REACTIONS (5)
  - Flushing [Recovered/Resolved]
  - Cough [Recovered/Resolved]
  - Tachypnoea [Recovered/Resolved]
  - Tachycardia [Recovered/Resolved]
  - Rash [Recovered/Resolved]

NARRATIVE: CASE EVENT DATE: 20230321
